FAERS Safety Report 18416167 (Version 1)
Quarter: 2020Q4

REPORT INFORMATION
  Report Type: Spontaneous
  Country: GB (occurrence: GB)
  Receive Date: 20201022
  Receipt Date: 20201022
  Transmission Date: 20210114
  Serious: Yes (Other)
  Sender: FDA-Public Use
  Company Number: GB-BAYER-2020-222787

PATIENT
  Age: 33 Year
  Sex: Female
  Weight: 95 kg

DRUGS (6)
  1. BETAMETHASONE VALERATE. [Concomitant]
     Active Substance: BETAMETHASONE VALERATE
     Dosage: APPLY FOR 1 TO 2 WEEKS
     Dates: start: 20200720, end: 20200803
  2. TERBINAFINE. [Concomitant]
     Active Substance: TERBINAFINE
     Dates: start: 20200623, end: 20200707
  3. MIRENA [Suspect]
     Active Substance: LEVONORGESTREL
     Dosage: 20 ?G PER DAY CONTINUOUSLY
     Route: 015
     Dates: start: 20200820
  4. FLUCLOXACILLIN [Concomitant]
     Active Substance: FLUCLOXACILLIN
     Dosage: 4 DF, QD
     Dates: start: 20200720, end: 20200727
  5. ATENOLOL. [Concomitant]
     Active Substance: ATENOLOL
     Dates: start: 20200325
  6. TACROLIMUS. [Concomitant]
     Active Substance: TACROLIMUS
     Dosage: APPLY FOR UP TO 6 WEEKS THEN WHEN R.
     Dates: start: 20200707, end: 20200804

REACTIONS (1)
  - Urticaria chronic [Not Recovered/Not Resolved]

NARRATIVE: CASE EVENT DATE: 20200820
